FAERS Safety Report 7659938-4 (Version None)
Quarter: 2011Q3

REPORT INFORMATION
  Report Type: 
  Country: None (occurrence: None)
  Receive Date: 20110805
  Receipt Date: 20110804
  Transmission Date: 20111222
  Serious: Yes (Other)
  Sender: FDA-Public Use
  Company Number: US-PFIZER INC-2011121133

PATIENT
  Sex: Male

DRUGS (14)
  1. VALSARTAN [Concomitant]
     Dosage: UNK
  2. DILTIAZEM HYDROCHLORIDE [Concomitant]
     Dosage: UNK
  3. ACETYLSALICYLIC ACID [Concomitant]
     Dosage: UNK
  4. COMBIVIR [Suspect]
     Indication: HIV INFECTION
     Dosage: UNK
     Route: 048
     Dates: start: 19991101
  5. NEXIUM [Concomitant]
     Dosage: UNK
  6. TAMSULOSIN HYDROCHLORIDE [Concomitant]
     Dosage: UNK
  7. PRENATAL VITAMINS [Concomitant]
     Dosage: UNK
  8. PRAVASTATIN [Concomitant]
     Dosage: UNK
  9. AMITRIPTYLINE [Concomitant]
     Dosage: UNK
  10. ZOLPIDEM [Concomitant]
     Dosage: UNK
  11. INDOMETHACIN [Concomitant]
     Dosage: UNK
  12. VITAMIN D [Concomitant]
     Dosage: UNK
  13. VIRACEPT [Suspect]
     Dosage: UNK
  14. HYDROCODONE [Concomitant]
     Dosage: UNK

REACTIONS (2)
  - HEPATIC ENZYME INCREASED [None]
  - GASTROOESOPHAGEAL REFLUX DISEASE [None]
